FAERS Safety Report 9864922 (Version 2)
Quarter: 2014Q1

REPORT INFORMATION
  Report Type: Spontaneous
  Country: US (occurrence: US)
  Receive Date: 20140203
  Receipt Date: 20140203
  Transmission Date: 20141002
  Serious: Yes (Death, Other)
  Sender: FDA-Public Use
  Company Number: US-TAKEDA-TPA2012A09335

PATIENT
  Sex: 0

DRUGS (5)
  1. ACTOS [Suspect]
     Indication: TYPE 2 DIABETES MELLITUS
     Dosage: 30 MG, UNK
     Dates: start: 201101, end: 201106
  2. ACTOS [Suspect]
     Dosage: 45 MG, UNK
     Dates: start: 20110803, end: 20111111
  3. METFORMIN [Concomitant]
     Dosage: 1000 MG, UNK
     Dates: start: 201101, end: 201206
  4. AMARYL [Concomitant]
     Dosage: 4 MG, UNK
     Dates: start: 201001, end: 201004
  5. JANUVIA [Concomitant]
     Dosage: 100 MG, UNK
     Dates: start: 201111

REACTIONS (2)
  - Death [Fatal]
  - Bladder cancer [Unknown]
